FAERS Safety Report 13438744 (Version 2)
Quarter: 2017Q2

REPORT INFORMATION
  Report Type: Spontaneous
  Country: BG (occurrence: BG)
  Receive Date: 20170413
  Receipt Date: 20170502
  Transmission Date: 20170830
  Serious: Yes (Hospitalization)
  Sender: FDA-Public Use
  Company Number: BG-JNJFOC-20170411600

PATIENT
  Age: 42 Year
  Sex: Male

DRUGS (4)
  1. XARELTO [Suspect]
     Active Substance: RIVAROXABAN
     Indication: ATRIAL FIBRILLATION
     Route: 048
  2. BISOPROLOL [Concomitant]
     Active Substance: BISOPROLOL
     Route: 065
  3. PERINDOPRIL [Concomitant]
     Active Substance: PERINDOPRIL
     Route: 065
  4. AMIODARONE [Concomitant]
     Active Substance: AMIODARONE
     Route: 065

REACTIONS (1)
  - Atrial fibrillation [Recovered/Resolved]

NARRATIVE: CASE EVENT DATE: 20170308
